FAERS Safety Report 23770031 (Version 1)
Quarter: 2024Q2

REPORT INFORMATION
  Report Type: Spontaneous
  Country: PL (occurrence: PL)
  Receive Date: 20240422
  Receipt Date: 20240422
  Transmission Date: 20240716
  Serious: Yes (Other)
  Sender: FDA-Public Use
  Company Number: PL-002147023-NVSC2024PL082622

PATIENT
  Age: 54 Year
  Sex: Male

DRUGS (1)
  1. ASCIMINIB [Suspect]
     Active Substance: ASCIMINIB
     Indication: Product used for unknown indication
     Dosage: UNK
     Route: 065
     Dates: start: 202308, end: 202310

REACTIONS (4)
  - Blast crisis in myelogenous leukaemia [Unknown]
  - Septic shock [Unknown]
  - Pneumonia klebsiella [Unknown]
  - Respiratory failure [Unknown]

NARRATIVE: CASE EVENT DATE: 20231101
